FAERS Safety Report 4360161-X (Version None)
Quarter: 2004Q2

REPORT INFORMATION
  Report Type: 
  Country: None (occurrence: None)
  Receive Date: 20040519
  Receipt Date: 20040511
  Transmission Date: 20050107
  Serious: Yes (Death, Life-Threatening)
  Sender: FDA-Public Use
  Company Number: PHRM2004FR01781

PATIENT
  Age: 21 Year
  Sex: Male
  Weight: 65 kg

DRUGS (6)
  1. GLEEVEC [Suspect]
     Indication: CHRONIC MYELOID LEUKAEMIA
     Dosage: 400 MG, QD
     Route: 048
     Dates: start: 20020315, end: 20020515
  2. PROZAC [Concomitant]
     Indication: DEPRESSION
     Route: 048
     Dates: start: 20020315
  3. HYDREA [Concomitant]
     Indication: CHRONIC MYELOID LEUKAEMIA
     Dosage: 3 G, QD
     Route: 048
     Dates: start: 20010915
  4. VEPESIDE-SANDOZ [Suspect]
     Dates: start: 20020501
  5. LASIX [Suspect]
     Dates: start: 20020501
  6. SOLU-MEDROL [Suspect]

REACTIONS (4)
  - ASCITES [None]
  - CARDIAC FAILURE [None]
  - OEDEMA PERIPHERAL [None]
  - PLEURAL EFFUSION [None]
